FAERS Safety Report 4479015-3 (Version None)
Quarter: 2004Q4

REPORT INFORMATION
  Report Type: 
  Country: None (occurrence: None)
  Receive Date: 20041015
  Receipt Date: 20040930
  Transmission Date: 20050328
  Serious: Yes (Other)
  Sender: FDA-Public Use
  Company Number: 2004-DE-05081GD

PATIENT
  Sex: 0

DRUGS (1)
  1. NEVIRAPNIE(NEVIRAPINE) (SIR) (NEVIRAPINE) [Suspect]
     Indication: HUMAN IMMUNODEFICIENCY VIRUS TRANSMISSION
     Dosage: PO   ONCE
     Route: 048

REACTIONS (3)
  - CONGENITAL HIV INFECTION [None]
  - DRUG INEFFECTIVE [None]
  - MATERNAL CONDITION AFFECTING FOETUS [None]
